FAERS Safety Report 11432240 (Version 2)
Quarter: 2015Q4

REPORT INFORMATION
  Report Type: Spontaneous
  Country: US (occurrence: US)
  Receive Date: 20150828
  Receipt Date: 20151006
  Transmission Date: 20160304
  Serious: Yes (Death, Hospitalization)
  Sender: FDA-Public Use
  Company Number: US-ENDO PHARMACEUTICALS INC.-2015-002583

PATIENT
  Age: 39 Year
  Sex: Male
  Weight: 129.39 kg

DRUGS (1)
  1. TESTIM [Suspect]
     Active Substance: TESTOSTERONE
     Indication: ANDROGEN REPLACEMENT THERAPY
     Dosage: PER FACT SHEET: ^2 TUBES DAILY^?PER MEDICAL RECORDS: ^5 GRAMS ONCE A DAY IN THE MORNING^
     Route: 062
     Dates: start: 200808, end: 201101

REACTIONS (3)
  - Congestive cardiomyopathy [Fatal]
  - Cardiac arrest [Fatal]
  - Cardiovascular disorder [Fatal]

NARRATIVE: CASE EVENT DATE: 20110515
